FAERS Safety Report 7481027-2 (Version None)
Quarter: 2011Q2

REPORT INFORMATION
  Report Type: 
  Country: None (occurrence: None)
  Receive Date: 20110516
  Receipt Date: 20110507
  Transmission Date: 20111010
  Serious: Yes (Hospitalization)
  Sender: FDA-Public Use
  Company Number: US-BRISTOL-MYERS SQUIBB COMPANY-15725112

PATIENT
  Age: 87 Year
  Sex: Male
  Weight: 54 kg

DRUGS (10)
  1. METFORMIN HCL [Concomitant]
  2. ALLEGRA [Concomitant]
  3. SINGULAIR [Concomitant]
  4. PREDNISONE [Concomitant]
  5. COUMADIN [Suspect]
     Dosage: RESTARTED AT 2.5MG
     Route: 048
  6. FLOVENT [Concomitant]
  7. GLYBURIDE [Concomitant]
  8. ALBUTEROL [Concomitant]
  9. TERAZOSIN HCL [Concomitant]
  10. XANAX [Concomitant]

REACTIONS (6)
  - DYSPNOEA [None]
  - BLOOD URINE PRESENT [None]
  - INTERNATIONAL NORMALISED RATIO INCREASED [None]
  - NASOPHARYNGITIS [None]
  - TREMOR [None]
  - FALL [None]
